FAERS Safety Report 24996117 (Version 1)
Quarter: 2025Q1

REPORT INFORMATION
  Report Type: Spontaneous
  Country: US (occurrence: US)
  Receive Date: 20250221
  Receipt Date: 20250221
  Transmission Date: 20250409
  Serious: No
  Sender: CATALYST PHARMA
  Company Number: US-CATALYST PHARMACEUTICALS-US-CATA-25-00126

PATIENT
  Age: 11 Year
  Sex: Male
  Weight: 49.887 kg

DRUGS (8)
  1. AGAMREE [Suspect]
     Active Substance: VAMOROLONE
     Indication: Duchenne muscular dystrophy
     Dosage: 6.4 ML ONCE A DAY
     Route: 048
     Dates: start: 20241206
  2. AGAMREE [Suspect]
     Active Substance: VAMOROLONE
     Dosage: TAKING 6 ML ONCE A DAY, BUT THEY ARE PRESCRIBED 6.4 ML BY MOUTH ONCE A DAY. HE HAS ONLY BEEN ON THE
     Route: 048
     Dates: start: 202501
  3. CARVEDILOL [Concomitant]
     Active Substance: CARVEDILOL
     Indication: Cardiac disorder
     Dosage: 3.125 MG TWICE DAILY
     Route: 065
  4. ALBUTEROL SULFATE [Concomitant]
     Active Substance: ALBUTEROL SULFATE
     Indication: Lung disorder
     Route: 055
  5. ENTRESTO [Concomitant]
     Active Substance: SACUBITRIL\VALSARTAN
     Indication: Cardiac disorder
     Dosage: 24-26 MG TWICE DAILY
     Route: 065
  6. SPIRONOLACTONE [Concomitant]
     Active Substance: SPIRONOLACTONE
     Indication: Cardiac disorder
     Dosage: 25 MG ONCE A DAY
     Route: 065
  7. VALTOCO [Concomitant]
     Active Substance: DIAZEPAM
     Indication: Seizure prophylaxis
     Route: 045
  8. FLINTSTONES MULTIPLE VITAMINS [Concomitant]
     Indication: Hypovitaminosis
     Dosage: ONCE DAILY
     Route: 065

REACTIONS (6)
  - Impatience [Not Recovered/Not Resolved]
  - Weight increased [Not Recovered/Not Resolved]
  - Swelling face [Not Recovered/Not Resolved]
  - Abnormal behaviour [Not Recovered/Not Resolved]
  - Increased appetite [Not Recovered/Not Resolved]
  - Incorrect dose administered [Unknown]

NARRATIVE: CASE EVENT DATE: 20241201
